FAERS Safety Report 11485377 (Version 1)
Quarter: 2015Q3

REPORT INFORMATION
  Report Type: Spontaneous
  Country: US (occurrence: None)
  Receive Date: 20150909
  Receipt Date: 20150909
  Transmission Date: 20151125
  Serious: Yes (Other)
  Sender: FDA-Public Use
  Company Number: None

PATIENT
  Age: 80 Year
  Sex: Male

DRUGS (9)
  1. HALOBETASOL PROPIONATE CREAM %0.05 PERRIGO CO [Suspect]
     Active Substance: HALOBETASOL PROPIONATE
     Indication: RASH
     Dosage: APPLY TWICE A DAY TO AFFECTED TWICE DAILY APPLIED TO A SURFACE, USUALLY THE SKIN
     Route: 061
     Dates: start: 20150825, end: 20150827
  2. COLCHISINE [Concomitant]
  3. VITAMIN D [Concomitant]
     Active Substance: CHOLECALCIFEROL
  4. PRAVASTATIN [Concomitant]
     Active Substance: PRAVASTATIN\PRAVASTATIN SODIUM
  5. GLUCOSAMINE/CHONDROITIN [Concomitant]
  6. VITAMIN B12 [Concomitant]
     Active Substance: CYANOCOBALAMIN
  7. VITAMIN B [Concomitant]
     Active Substance: VITAMIN B
  8. LOVAZA [Concomitant]
     Active Substance: OMEGA-3-ACID ETHYL ESTERS
  9. MULTIVITAMINS [Concomitant]
     Active Substance: VITAMINS

REACTIONS (7)
  - Rash [None]
  - Joint swelling [None]
  - Erythema [None]
  - Urine output increased [None]
  - Fatigue [None]
  - Skin exfoliation [None]
  - Visual impairment [None]

NARRATIVE: CASE EVENT DATE: 20150825
